FAERS Safety Report 4921421-4 (Version None)
Quarter: 2006Q1

REPORT INFORMATION
  Report Type: 
  Country: None (occurrence: None)
  Receive Date: 20060222
  Receipt Date: 20060222
  Transmission Date: 20060701
  Serious: Yes (Hospitalization, Other)
  Sender: FDA-Public Use
  Company Number: None

PATIENT
  Sex: Female
  Weight: 58.97 kg

DRUGS (2)
  1. GEMCITABINE [Suspect]
     Indication: CERVIX CARCINOMA
     Dosage: 2544 MG
     Dates: start: 20051219, end: 20051227
  2. EFFEXOR [Concomitant]

REACTIONS (2)
  - ANAEMIA [None]
  - SINUSITIS [None]
